FAERS Safety Report 6680279-6 (Version None)
Quarter: 2010Q2

REPORT INFORMATION
  Report Type: 
  Country: None (occurrence: None)
  Receive Date: 20100413
  Receipt Date: 20100409
  Transmission Date: 20101027
  Serious: Yes (Other)
  Sender: FDA-Public Use
  Company Number: ES-MERCK-1004ESP00009

PATIENT
  Age: 46 Year
  Sex: Male

DRUGS (1)
  1. COSOPT [Suspect]
     Indication: INTRAOCULAR PRESSURE INCREASED
     Route: 047
     Dates: start: 20070201, end: 20090201

REACTIONS (1)
  - RENAL PAIN [None]
